FAERS Safety Report 4657847-6 (Version None)
Quarter: 2005Q2

REPORT INFORMATION
  Report Type: 
  Country: None (occurrence: None)
  Receive Date: 20050510
  Receipt Date: 20050425
  Transmission Date: 20051028
  Serious: Yes (Hospitalization)
  Sender: FDA-Public Use
  Company Number: PHBS2005BE06189

PATIENT
  Age: 85 Year
  Sex: Female

DRUGS (3)
  1. BETAHISTINE [Concomitant]
  2. XANAX [Concomitant]
  3. CO-DIOVAN [Suspect]
     Indication: HYPERTENSION
     Dosage: 80 MG
     Route: 048
     Dates: start: 20040101, end: 20050101

REACTIONS (2)
  - BRONCHITIS [None]
  - HYPONATRAEMIA [None]
